FAERS Safety Report 5979053-5 (Version None)
Quarter: 2008Q4

REPORT INFORMATION
  Report Type: 
  Country: None (occurrence: None)
  Receive Date: 20081204
  Receipt Date: 20080520
  Transmission Date: 20090506
  Serious: No
  Sender: FDA-Public Use
  Company Number: US-ABBOTT-08P-163-0455606-00

PATIENT
  Age: 51 Year
  Sex: Male

DRUGS (1)
  1. TRICOR [Suspect]
     Indication: BLOOD TRIGLYCERIDES INCREASED

REACTIONS (12)
  - DISORIENTATION [None]
  - DIZZINESS [None]
  - FATIGUE [None]
  - HYPERSENSITIVITY [None]
  - INSOMNIA [None]
  - JAUNDICE [None]
  - JOINT RANGE OF MOTION DECREASED [None]
  - MUSCLE SPASMS [None]
  - MUSCULAR WEAKNESS [None]
  - MYALGIA [None]
  - NAUSEA [None]
  - NIGHTMARE [None]
